FAERS Safety Report 5523202-X (Version None)
Quarter: 2007Q4

REPORT INFORMATION
  Report Type: 
  Country: None (occurrence: None)
  Receive Date: 20071121
  Receipt Date: 20071109
  Transmission Date: 20080405
  Serious: Yes (Other)
  Sender: FDA-Public Use
  Company Number: JP-BRISTOL-MYERS SQUIBB COMPANY-13959960

PATIENT
  Age: 52 Year
  Sex: Male

DRUGS (3)
  1. GATIFLOXACIN [Suspect]
     Indication: BALANOPOSTHITIS
     Route: 048
     Dates: start: 20071010, end: 20071010
  2. AVISHOT [Concomitant]
     Route: 048
     Dates: start: 20071010, end: 20071010
  3. MUCOSTA [Concomitant]
     Route: 048
     Dates: start: 20071010, end: 20071010

REACTIONS (1)
  - PHOTODERMATOSIS [None]
